FAERS Safety Report 24169893 (Version 2)
Quarter: 2024Q3

REPORT INFORMATION
  Report Type: Spontaneous
  Country: US (occurrence: US)
  Receive Date: 20240803
  Receipt Date: 20240806
  Transmission Date: 20241016
  Serious: No
  Sender: ROCHE
  Company Number: US-ROCHE-10000038385

PATIENT
  Sex: Female

DRUGS (3)
  1. ACTEMRA [Suspect]
     Active Substance: TOCILIZUMAB
     Indication: Rheumatoid arthritis
     Route: 058
     Dates: start: 202406
  2. ACTEMRA [Suspect]
     Active Substance: TOCILIZUMAB
  3. KYLEENA [Concomitant]
     Active Substance: LEVONORGESTREL
     Indication: Intra-uterine contraceptive device insertion
     Route: 015

REACTIONS (3)
  - Wrong technique in device usage process [Unknown]
  - Malaise [Unknown]
  - Incorrect dose administered [Unknown]
